FAERS Safety Report 18668820 (Version 1)
Quarter: 2020Q4

REPORT INFORMATION
  Report Type: Spontaneous
  Country: US (occurrence: US)
  Receive Date: 20201228
  Receipt Date: 20201228
  Transmission Date: 20210114
  Serious: No
  Sender: FDA-Public Use
  Company Number: US-COOPERSURGICAL, INC.-US-2020CPS000487

PATIENT
  Age: 33 Year
  Sex: Female
  Weight: 60.77 kg

DRUGS (4)
  1. PROBIOTIC                          /06395501/ [Concomitant]
     Active Substance: BIFIDOBACTERIUM ANIMALIS LACTIS
     Indication: SUPPLEMENTATION THERAPY
     Dosage: UNK
     Route: 065
  2. MULTIVITAMINS                      /07504101/ [Concomitant]
     Active Substance: VITAMINS
     Indication: SUPPLEMENTATION THERAPY
     Dosage: UNK
     Route: 065
  3. PARAGARD T 380A [Suspect]
     Active Substance: COPPER
     Indication: CONTRACEPTION
     Dosage: UNK
     Route: 015
     Dates: start: 20191212, end: 202002
  4. PARAGARD T 380A [Suspect]
     Active Substance: COPPER
     Dosage: UNK
     Route: 015
     Dates: start: 202005

REACTIONS (4)
  - Sensation of foreign body [Recovered/Resolved]
  - Unintentional medical device removal [Recovered/Resolved]
  - Device expulsion [Recovered/Resolved]
  - Dysfunctional uterine bleeding [Recovering/Resolving]

NARRATIVE: CASE EVENT DATE: 20191213
